FAERS Safety Report 21129579 (Version 1)
Quarter: 2022Q3

REPORT INFORMATION
  Report Type: Spontaneous
  Country: NL (occurrence: NL)
  Receive Date: 20220726
  Receipt Date: 20220726
  Transmission Date: 20221026
  Serious: Yes (Hospitalization)
  Sender: FDA-Public Use
  Company Number: Unknown

PATIENT
  Age: 67 Year
  Sex: Male

DRUGS (1)
  1. OLMESARTAN MEDOXOMIL [Suspect]
     Active Substance: OLMESARTAN MEDOXOMIL
     Indication: Hypertension
     Dosage: DAILY USE WAS 160MG, WHILE A MAXIMUM DOSE OF 40MG DAILY IS RECOMMENDED
     Route: 065

REACTIONS (2)
  - Overdose [Recovered/Resolved]
  - Bone marrow failure [Recovered/Resolved]
